FAERS Safety Report 15519608 (Version 3)
Quarter: 2018Q4

REPORT INFORMATION
  Report Type: Spontaneous
  Country: FR (occurrence: FR)
  Receive Date: 20181017
  Receipt Date: 20181126
  Transmission Date: 20190205
  Serious: Yes (Hospitalization)
  Sender: FDA-Public Use
  Company Number: FR-ALLERGAN-1849262US

PATIENT
  Age: 15 Year
  Sex: Female

DRUGS (2)
  1. LUTERAN [Concomitant]
     Active Substance: CHLORMADINONE ACETATE
     Indication: PRODUCT USED FOR UNKNOWN INDICATION
     Dosage: 10 MG (1 DOSAGE FORM), QD
     Route: 048
     Dates: start: 20170428, end: 20170630
  2. TRIPTORELIN PAMOATE - BP [Suspect]
     Active Substance: TRIPTORELIN PAMOATE
     Indication: ENDOMETRIOSIS
     Dosage: 1 DF, EVERY 12 WEEKS
     Route: 030
     Dates: start: 20170601

REACTIONS (1)
  - Hypertension [Recovered/Resolved]

NARRATIVE: CASE EVENT DATE: 201707
